FAERS Safety Report 7475935-6 (Version None)
Quarter: 2011Q2

REPORT INFORMATION
  Report Type: 
  Country: None (occurrence: None)
  Receive Date: 20110512
  Receipt Date: 20110505
  Transmission Date: 20111010
  Serious: Yes (Other)
  Sender: FDA-Public Use
  Company Number: PHHY2011DE39310

PATIENT
  Sex: Male

DRUGS (2)
  1. CORTISONE [Concomitant]
  2. ZOMETA [Suspect]
     Route: 042
     Dates: start: 20050201, end: 20090527

REACTIONS (1)
  - OSTEONECROSIS OF JAW [None]
